FAERS Safety Report 23116561 (Version 2)
Quarter: 2025Q1

REPORT INFORMATION
  Report Type: Report from Study
  Country: CA (occurrence: CA)
  Receive Date: 20231027
  Receipt Date: 20250213
  Transmission Date: 20250409
  Serious: Yes (Death, Other)
  Sender: BIOCON
  Company Number: CA-MYLANLABS-2022M1117095

PATIENT

DRUGS (2)
  1. HULIO [Suspect]
     Active Substance: ADALIMUMAB-FKJP
     Indication: Rheumatoid arthritis
     Route: 058
     Dates: start: 20210830
  2. HULIO [Suspect]
     Active Substance: ADALIMUMAB-FKJP
     Dosage: 40 MILLIGRAM, QWEEK
     Route: 058
     Dates: start: 20210830

REACTIONS (5)
  - Death [Fatal]
  - Myocardial infarction [Unknown]
  - Arthralgia [Unknown]
  - Dyspnoea [Unknown]
  - Therapy interrupted [Unknown]
